FAERS Safety Report 5608026-7 (Version None)
Quarter: 2008Q1

REPORT INFORMATION
  Report Type: 
  Country: None (occurrence: None)
  Receive Date: 20080130
  Receipt Date: 20071115
  Transmission Date: 20080703
  Serious: Yes (Other)
  Sender: FDA-Public Use
  Company Number: GB-TEVA-164185ISR

PATIENT
  Age: 54 Year
  Sex: Female

DRUGS (3)
  1. LEVOTHYROXINE SODIUM [Suspect]
     Indication: HYPOTHYROIDISM
     Dates: start: 20000101
  2. CIMICIFUGA RACEMOSA EXTRACT [Suspect]
     Indication: HOT FLUSH
     Dates: start: 20070927, end: 20071029
  3. CIMICIFUGA RACEMOSA EXTRACT [Suspect]
     Indication: MENOPAUSE

REACTIONS (5)
  - ABDOMINAL DISCOMFORT [None]
  - DRUG INTERACTION [None]
  - FATIGUE [None]
  - HEADACHE [None]
  - NAUSEA [None]
